FAERS Safety Report 13021040 (Version 1)
Quarter: 2016Q4

REPORT INFORMATION
  Report Type: Spontaneous
  Country: US (occurrence: US)
  Receive Date: 20161213
  Receipt Date: 20161213
  Transmission Date: 20170207
  Serious: No
  Sender: FDA-Public Use
  Company Number: US-AMGEN-USASP2016172637

PATIENT
  Sex: Female

DRUGS (1)
  1. ENBREL [Suspect]
     Active Substance: ETANERCEPT
     Indication: RHEUMATOID ARTHRITIS
     Dosage: 25 MG, AS NEEDED FOR PAINEVERY 10 DAY TO 2 WEEKS
     Route: 065
     Dates: start: 1999

REACTIONS (2)
  - Intentional product misuse [Unknown]
  - Muscular weakness [Unknown]
